FAERS Safety Report 7950216-2 (Version None)
Quarter: 2011Q4

REPORT INFORMATION
  Report Type: 
  Country: None (occurrence: None)
  Receive Date: 20111130
  Receipt Date: 20111121
  Transmission Date: 20120403
  Serious: Yes (Hospitalization)
  Sender: FDA-Public Use
  Company Number: GB-JNJFOC-20111111454

PATIENT
  Age: 84 Year
  Sex: Female

DRUGS (8)
  1. XARELTO [Suspect]
     Indication: THROMBOSIS PROPHYLAXIS
     Route: 048
     Dates: start: 20111024, end: 20111103
  2. CLINDAMYCIN [Concomitant]
  3. SECURON [Concomitant]
  4. VALSARTAN [Concomitant]
  5. MELOXICAM [Concomitant]
  6. PANTOPRAZOLE [Concomitant]
  7. SCOPOLAMINE [Concomitant]
  8. SOLUBLE CO-CODAMOL [Concomitant]

REACTIONS (5)
  - ERYTHEMA [None]
  - OEDEMA PERIPHERAL [None]
  - RASH [None]
  - RESTLESS LEGS SYNDROME [None]
  - HYPONATRAEMIA [None]
